FAERS Safety Report 4590261-0 (Version None)
Quarter: 2005Q1

REPORT INFORMATION
  Report Type: 
  Country: None (occurrence: None)
  Receive Date: 20050217
  Receipt Date: 20050209
  Transmission Date: 20050727
  Serious: Yes (Death, Other)
  Sender: FDA-Public Use
  Company Number: USA-2005-0018324

PATIENT
  Age: 24 Year
  Sex: Male
  Weight: 92.5 kg

DRUGS (3)
  1. OXYCONTIN [Suspect]
     Dosage: 1 TABLET, SINGLE
  2. ETHANOL (ETHANOL) [Suspect]
  3. METOCLOPRAMIDE [Concomitant]

REACTIONS (17)
  - ACCIDENTAL DEATH [None]
  - ALCOHOL POISONING [None]
  - ANOXIC ENCEPHALOPATHY [None]
  - BRAIN DEATH [None]
  - CARDIAC ARREST [None]
  - CARDIO-RESPIRATORY ARREST [None]
  - CONVULSION [None]
  - CYANOSIS [None]
  - DRUG TOXICITY [None]
  - FOAMING AT MOUTH [None]
  - MALAISE [None]
  - MULTIPLE DRUG OVERDOSE [None]
  - MULTIPLE DRUG OVERDOSE ACCIDENTAL [None]
  - POLYSUBSTANCE ABUSE [None]
  - PULMONARY EMBOLISM [None]
  - PULMONARY INFARCTION [None]
  - RESPIRATORY ARREST [None]
